FAERS Safety Report 21311156 (Version 1)
Quarter: 2022Q3

REPORT INFORMATION
  Report Type: Spontaneous
  Country: US (occurrence: None)
  Receive Date: 20220909
  Receipt Date: 20220909
  Transmission Date: 20221027
  Serious: No
  Sender: FDA-Public Use
  Company Number: US-ARIS GLOBAL-202201-0137

PATIENT
  Age: 66 Year
  Sex: Female

DRUGS (3)
  1. OXERVATE [Suspect]
     Active Substance: CENEGERMIN-BKBJ
     Indication: Neurotrophic keratopathy
     Route: 047
     Dates: start: 20220110
  2. SIMPONI ARIA [Concomitant]
     Active Substance: GOLIMUMAB
     Dosage: 50 MG/4 ML VIAL
  3. ARTIFICIAL TEARS [Concomitant]
     Active Substance: GLYCERIN\HYPROMELLOSES\POLYETHYLENE GLYCOL 400

REACTIONS (2)
  - Scleral hyperaemia [Unknown]
  - Eye discharge [Unknown]

NARRATIVE: CASE EVENT DATE: 20220123
